FAERS Safety Report 14291275 (Version 1)
Quarter: 2017Q4

REPORT INFORMATION
  Report Type: Spontaneous
  Country: US (occurrence: US)
  Receive Date: 20171215
  Receipt Date: 20171215
  Transmission Date: 20180321
  Serious: No
  Sender: FDA-Public Use
  Company Number: US-LPDUSPRD-20170437

PATIENT
  Age: 80 Year
  Sex: Female

DRUGS (1)
  1. VENOFER [Suspect]
     Active Substance: IRON SUCROSE
     Dosage: UNKNOWN DOSE
     Route: 042

REACTIONS (4)
  - Infusion site swelling [Unknown]
  - Skin discolouration [Recovered/Resolved]
  - Haematoma [Unknown]
  - Paraesthesia [Unknown]
